FAERS Safety Report 9225140 (Version 1)
Quarter: 2013Q1

REPORT INFORMATION
  Report Type: Spontaneous
  Country: US (occurrence: None)
  Receive Date: 20120921
  Receipt Date: 20120921
  Transmission Date: 20140127
  Serious: Yes (Hospitalization)
  Sender: FDA-Public Use
  Company Number: 2012ST000286

PATIENT
  Age: 72 Year
  Sex: Male

DRUGS (1)
  1. MATULANE CAPSULES [Suspect]
     Indication: CHRONIC MYELOID LEUKAEMIA
     Route: 048
     Dates: start: 20111101

REACTIONS (1)
  - Infection [None]
